FAERS Safety Report 7328848-4 (Version None)
Quarter: 2011Q1

REPORT INFORMATION
  Report Type: 
  Country: None (occurrence: None)
  Receive Date: 20110303
  Receipt Date: 20110222
  Transmission Date: 20110831
  Serious: Yes (Death)
  Sender: FDA-Public Use
  Company Number: DE-ROCHE-761507

PATIENT
  Age: 24 Year
  Sex: Female

DRUGS (1)
  1. BEVACIZUMAB [Suspect]
     Indication: SIGNET-RING CELL CARCINOMA
     Route: 065

REACTIONS (3)
  - PULMONARY HAEMORRHAGE [None]
  - HAEMOPTYSIS [None]
  - PNEUMONITIS [None]
